FAERS Safety Report 13831684 (Version 1)
Quarter: 2017Q3

REPORT INFORMATION
  Report Type: Spontaneous
  Country: US (occurrence: US)
  Receive Date: 20170803
  Receipt Date: 20170803
  Transmission Date: 20171127
  Serious: No
  Sender: FDA-Public Use
  Company Number: US-ROCHE-667410

PATIENT
  Age: 81 Year
  Sex: Female
  Weight: 63.5 kg

DRUGS (1)
  1. BONIVA [Suspect]
     Active Substance: IBANDRONATE SODIUM
     Indication: OSTEOPENIA
     Dosage: ONLY ONE DOSE
     Route: 048
     Dates: start: 20091101, end: 20091101

REACTIONS (4)
  - Pain [Recovered/Resolved]
  - Nausea [Unknown]
  - Diarrhoea [Unknown]
  - Gastrointestinal pain [Unknown]

NARRATIVE: CASE EVENT DATE: 20091102
